FAERS Safety Report 10422921 (Version 1)
Quarter: 2014Q3

REPORT INFORMATION
  Report Type: Spontaneous
  Country: US (occurrence: US)
  Receive Date: 20140902
  Receipt Date: 20140902
  Transmission Date: 20150326
  Serious: No
  Sender: FDA-Public Use
  Company Number: US-009507513-1408USA004187

PATIENT
  Sex: Female

DRUGS (19)
  1. PEGASYS [Suspect]
     Active Substance: PEGINTERFERON ALFA-2A
     Indication: HEPATITIS C
     Dosage: 180 MCG/0.5 ML, 180 MCG
     Route: 058
     Dates: start: 20100202
  2. PEGASYS [Suspect]
     Active Substance: PEGINTERFERON ALFA-2A
     Dosage: 180 MICROGRAM/0.5 ML, ONCE A WEEK ON FRIDAYS
     Route: 058
     Dates: start: 20120210
  3. NEUPOGEN [Suspect]
     Active Substance: FILGRASTIM
     Dosage: 300 MCG/0.5 ML, 300 MCG ON SATURDAYS
     Route: 058
     Dates: start: 20100406
  4. NEUPOGEN [Suspect]
     Active Substance: FILGRASTIM
     Dosage: EVERY OTHER WEEK (300 MCG)
     Route: 058
     Dates: start: 201405
  5. LEVAQUIN [Concomitant]
     Active Substance: LEVOFLOXACIN
     Dosage: FOR 7 DAYS, 250 MG, 1 IN 1 D
     Route: 048
  6. RIBASPHERE RIBAPAK [Suspect]
     Active Substance: RIBAVIRIN
     Indication: HEPATITIS C
     Dosage: UNK
     Dates: start: 20100202
  7. CRANBERRY. [Concomitant]
     Active Substance: CRANBERRY
  8. MELATONIN [Concomitant]
     Active Substance: MELATONIN
  9. LACTULOSE. [Concomitant]
     Active Substance: LACTULOSE
     Dosage: PRN, 30 ML, 1 IN 1 D
  10. POTASSIUM CHLORIDE. [Concomitant]
     Active Substance: POTASSIUM CHLORIDE
     Dosage: EXTENDED RELEASE (20 MEQ, 1 IN 1 D)
     Route: 048
  11. VICTRELIS [Suspect]
     Active Substance: BOCEPREVIR
     Indication: HEPATITIS C
     Dosage: 4 DF TID, WITH FOOD, STOP AT 36 WEEK
     Route: 048
     Dates: start: 20120309
  12. PRILOSEC [Concomitant]
     Active Substance: OMEPRAZOLE MAGNESIUM
     Dosage: DELAYED RELEASE, ENTERIC COATED, 20 MG, 1 IN 1 D
     Route: 048
  13. HYDROCORTISONE. [Concomitant]
     Active Substance: HYDROCORTISONE
     Dosage: FOR 10 DAYS, 1 IN 1 D
  14. FERROUS SULFATE [Concomitant]
     Active Substance: FERROUS SULFATE\FERROUS SULFATE, DRIED
     Dosage: FOR 5 DAYS, 20 MEQ, 1 IN 1 D
     Route: 048
  15. ZOFRAN [Concomitant]
     Active Substance: ONDANSETRON HYDROCHLORIDE
     Dosage: 4 MG, 1 IN 1 D
     Route: 048
  16. CIPRO [Concomitant]
     Active Substance: CIPROFLOXACIN HYDROCHLORIDE
     Dosage: 250 MG, 2 IN 1 D
     Route: 048
  17. FLAGYL [Concomitant]
     Active Substance: METRONIDAZOLE\METRONIDAZOLE HYDROCHLORIDE
     Dosage: 250 MG, 3 IN 1 D
     Route: 048
  18. ZOLOFT [Concomitant]
     Active Substance: SERTRALINE HYDROCHLORIDE
  19. RIBAVIRIN. [Suspect]
     Active Substance: RIBAVIRIN
     Indication: HEPATITIS C
     Dosage: 2 IN AM AND 2 IN PM
     Route: 048
     Dates: start: 20120210

REACTIONS (27)
  - Upper-airway cough syndrome [Unknown]
  - Back pain [Unknown]
  - Constipation [Unknown]
  - Dyspepsia [Unknown]
  - Headache [Unknown]
  - Nausea [Unknown]
  - Neutropenia [Unknown]
  - Asthenia [Unknown]
  - Weight increased [Unknown]
  - Weight decreased [Unknown]
  - Haematochezia [Unknown]
  - Weight decreased [Unknown]
  - Gastrooesophageal reflux disease [Unknown]
  - Diarrhoea [Unknown]
  - Blood potassium decreased [Unknown]
  - Cellulitis [Unknown]
  - Gastritis [Unknown]
  - Urinary tract infection [Unknown]
  - Vomiting [Unknown]
  - Arthralgia [Unknown]
  - Anaemia [Unknown]
  - Joint stiffness [Unknown]
  - Pollakiuria [Unknown]
  - Abdominal pain [Unknown]
  - Dizziness [Unknown]
  - Rash [Unknown]
  - Fatigue [Unknown]

NARRATIVE: CASE EVENT DATE: 20120315
